FAERS Safety Report 5124491-6 (Version None)
Quarter: 2006Q4

REPORT INFORMATION
  Report Type: 
  Country: None (occurrence: None)
  Receive Date: 20060821
  Receipt Date: 20060512
  Transmission Date: 20070319
  Serious: No
  Sender: FDA-Public Use
  Company Number: TPA2006A00538

PATIENT
  Age: 49 Year
  Sex: Male
  Weight: 86.1834 kg

DRUGS (2)
  1. ROZEREM [Suspect]
     Indication: INSOMNIA
     Dosage: 8 MG, 30 MINUTES PRIOR TO BEDTIME, PER ORAL
     Route: 048
     Dates: start: 20060322, end: 20060323
  2. PROZAC [Concomitant]

REACTIONS (3)
  - AGITATION [None]
  - DRUG INEFFECTIVE [None]
  - SOMNOLENCE [None]
